FAERS Safety Report 12324852 (Version 2)
Quarter: 2016Q3

REPORT INFORMATION
  Report Type: Report from Study
  Country: US (occurrence: US)
  Receive Date: 20160502
  Receipt Date: 20160810
  Transmission Date: 20161109
  Serious: Yes (Other)
  Sender: FDA-Public Use
  Company Number: US-ASTRAZENECA-2015SE39274

PATIENT
  Age: 776 Month
  Sex: Female

DRUGS (4)
  1. LYNPARZA [Suspect]
     Active Substance: OLAPARIB
     Indication: OVARIAN CANCER
     Dosage: DOSE UNKNOWN
     Route: 048
  2. LYNPARZA [Suspect]
     Active Substance: OLAPARIB
     Indication: OVARIAN CANCER
     Dosage: 4 PILLS TWICE A DAY
     Route: 048
  3. LYNPARZA [Suspect]
     Active Substance: OLAPARIB
     Indication: THYROID CANCER
     Dosage: 4 PILLS TWICE A DAY
     Route: 048
  4. LYNPARZA [Suspect]
     Active Substance: OLAPARIB
     Indication: THYROID CANCER
     Dosage: DOSE UNKNOWN
     Route: 048

REACTIONS (10)
  - Nausea [Unknown]
  - Dyspepsia [Unknown]
  - Malignant neoplasm progression [Unknown]
  - Cough [Unknown]
  - Metastases to central nervous system [Unknown]
  - Gastroenteritis viral [Unknown]
  - Brain neoplasm [Unknown]
  - Haematocrit decreased [Not Recovered/Not Resolved]
  - Malaise [Unknown]
  - Blood calcium increased [Unknown]

NARRATIVE: CASE EVENT DATE: 201602
